FAERS Safety Report 13926699 (Version 1)
Quarter: 2017Q3

REPORT INFORMATION
  Report Type: Spontaneous
  Country: US (occurrence: US)
  Receive Date: 20170831
  Receipt Date: 20170831
  Transmission Date: 20171127
  Serious: No
  Sender: FDA-Public Use
  Company Number: US-SUNOVION-2017SUN000641

PATIENT
  Sex: Female

DRUGS (4)
  1. BROVANA [Suspect]
     Active Substance: ARFORMOTEROL TARTRATE
     Indication: ASTHMA
     Dosage: 15MCG/2ML
     Route: 055
  2. BUDESONIDE. [Concomitant]
     Active Substance: BUDESONIDE
     Indication: ASTHMA
     Dosage: UNK
  3. BROVANA [Suspect]
     Active Substance: ARFORMOTEROL TARTRATE
     Indication: CHRONIC OBSTRUCTIVE PULMONARY DISEASE
  4. BUDESONIDE. [Concomitant]
     Active Substance: BUDESONIDE
     Indication: CHRONIC OBSTRUCTIVE PULMONARY DISEASE

REACTIONS (3)
  - Dysphonia [Not Recovered/Not Resolved]
  - Drug prescribing error [Unknown]
  - Off label use [Unknown]
